FAERS Safety Report 9012760 (Version 2)
Quarter: 2013Q1

REPORT INFORMATION
  Report Type: Spontaneous
  Country: NL (occurrence: NL)
  Receive Date: 20130114
  Receipt Date: 20130201
  Transmission Date: 20140127
  Serious: Yes (Life-Threatening, Other)
  Sender: FDA-Public Use
  Company Number: NL-ABBOTT-13P-114-1035559-00

PATIENT
  Age: 50 Year
  Sex: Male

DRUGS (4)
  1. SODIUM VALPROATE [Suspect]
     Indication: EPILEPSY
     Route: 048
     Dates: start: 2003, end: 2004
  2. LAMOTRIGINE [Suspect]
     Indication: EPILEPSY
     Route: 048
     Dates: start: 200303, end: 2007
  3. LAMOTRIGINE [Suspect]
     Dates: start: 2010, end: 2011
  4. KEPPRA [Concomitant]
     Indication: PRODUCT USED FOR UNKNOWN INDICATION

REACTIONS (5)
  - Autoimmune thyroiditis [Not Recovered/Not Resolved]
  - Cognitive disorder [Unknown]
  - Affect lability [Recovered/Resolved]
  - Urticaria [Recovered/Resolved]
  - Aggression [Recovered/Resolved]
